FAERS Safety Report 19390271 (Version 1)
Quarter: 2021Q2

REPORT INFORMATION
  Report Type: Spontaneous
  Country: US (occurrence: US)
  Receive Date: 20210608
  Receipt Date: 20210608
  Transmission Date: 20210717
  Serious: Yes (Hospitalization)
  Sender: FDA-Public Use
  Company Number: US-UNICHEM PHARMACEUTICALS (USA) INC-UCM202105-000505

PATIENT
  Age: 27 Year
  Sex: Male

DRUGS (1)
  1. BACLOFEN. [Suspect]
     Active Substance: BACLOFEN
     Indication: INTENTIONAL OVERDOSE
     Dosage: UNKNOWN

REACTIONS (4)
  - Intentional overdose [Unknown]
  - Encephalopathy [Recovering/Resolving]
  - Withdrawal syndrome [Recovering/Resolving]
  - Catatonia [Recovering/Resolving]
